FAERS Safety Report 11165703 (Version 1)
Quarter: 2015Q2

REPORT INFORMATION
  Report Type: Spontaneous
  Country: US (occurrence: US)
  Receive Date: 20150604
  Receipt Date: 20150604
  Transmission Date: 20150821
  Serious: Yes (Other)
  Sender: FDA-Public Use
  Company Number: US-PFIZER INC-2015181917

PATIENT
  Age: 59 Year
  Sex: Male

DRUGS (37)
  1. VASOTEC [Concomitant]
     Active Substance: ENALAPRIL MALEATE
     Dosage: 5 MG, UNK
  2. POTASSIUM CHLORIDE. [Concomitant]
     Active Substance: POTASSIUM CHLORIDE
     Dosage: 20 MEQ IN 100 ML IVPB
  3. BENADRYL [Concomitant]
     Active Substance: DIPHENHYDRAMINE HYDROCHLORIDE
     Dosage: 25 MG, UNK
  4. BENADRYL [Concomitant]
     Active Substance: DIPHENHYDRAMINE HYDROCHLORIDE
     Dosage: 50 MG, UNK
  5. IMODIUM [Concomitant]
     Active Substance: LOPERAMIDE HYDROCHLORIDE
     Dosage: 4 MG, UNK
  6. MS CONTIN [Concomitant]
     Active Substance: MORPHINE SULFATE
     Dosage: 30 MG, UNK (12 HR)
  7. MIRALAX [Concomitant]
     Active Substance: POLYETHYLENE GLYCOL 3350
     Dosage: 17 G, UNK
  8. SODIUM CHLORIDE. [Concomitant]
     Active Substance: SODIUM CHLORIDE
     Dosage: 0.9% INFUSION
     Route: 041
  9. TIVICAY [Concomitant]
     Active Substance: DOLUTEGRAVIR SODIUM
     Dosage: 50 MG, UNK
  10. ADRENALIN /00003901/ [Concomitant]
     Dosage: 0.3 MG, UNK
  11. NEUPOGEN [Concomitant]
     Active Substance: FILGRASTIM
     Dosage: 480 ?G, UNK
  12. CLARITIN [Concomitant]
     Active Substance: LORATADINE
     Dosage: 10 MG, UNK
  13. SENOKOT [Concomitant]
     Active Substance: SENNOSIDES
     Dosage: 2 TABLETS, UNK
  14. SIMETHICONE [Concomitant]
     Active Substance: DIMETHICONE\SILICON DIOXIDE\SIMETHICONE
     Dosage: 80 MG, UNK
  15. SODIUM CHLORIDE. [Concomitant]
     Active Substance: SODIUM CHLORIDE
     Dosage: 0.9% BOLUS 1000 ML
     Route: 040
  16. TYLENOL [Concomitant]
     Active Substance: ACETAMINOPHEN
     Dosage: 650 MG, UNK
  17. REMERON [Concomitant]
     Active Substance: MIRTAZAPINE
     Dosage: 15 MG, UNK
  18. NORVASC [Concomitant]
     Active Substance: AMLODIPINE BESYLATE
     Dosage: 10 MG, UNK
  19. IMODIUM [Concomitant]
     Active Substance: LOPERAMIDE HYDROCHLORIDE
     Dosage: 2 MG, UNK
  20. PEPCID [Concomitant]
     Active Substance: FAMOTIDINE
     Dosage: 20 MG, UNK
  21. KEPPRA [Concomitant]
     Active Substance: LEVETIRACETAM
     Dosage: 750 MG, 2X/DAY
     Dates: start: 20150201
  22. ROXICODONE [Concomitant]
     Active Substance: OXYCODONE HYDROCHLORIDE
     Dosage: 10 MG, UNK
  23. COMPAZINE [Concomitant]
     Active Substance: PROCHLORPERAZINE MALEATE
     Dosage: 10 MG, UNK
  24. VALTREX [Concomitant]
     Active Substance: VALACYCLOVIR HYDROCHLORIDE
     Dosage: 500 MG, UNK
  25. NEURONTIN [Concomitant]
     Active Substance: GABAPENTIN
     Dosage: 300 MG, UNK
  26. SELZENTRY [Concomitant]
     Active Substance: MARAVIROC
     Dosage: 300 MG, UNK
  27. BENADRYL [Concomitant]
     Active Substance: DIPHENHYDRAMINE HYDROCHLORIDE
     Dosage: 25 MG, UNK
  28. XYNTHA [Suspect]
     Active Substance: ANTIHEMOPHILIC FACTOR, HUMAN RECOMBINANT RESIDUES 743-1636 DELETED
     Indication: FACTOR VIII DEFICIENCY
     Dosage: 250 +/- 3650 UNITS
     Route: 041
  29. DAPSONE. [Concomitant]
     Active Substance: DAPSONE
     Dosage: 100 MG, UNK
  30. BARACLUDE [Concomitant]
     Active Substance: ENTECAVIR
     Dosage: 0.5 MG, UNK
     Dates: start: 20150214
  31. MAGNESIUM SULFATE. [Concomitant]
     Active Substance: MAGNESIUM SULFATE
     Dosage: 2GRAM/50ML (4%) IVPB 2G
     Route: 042
  32. DEMEROL [Concomitant]
     Active Substance: MEPERIDINE HYDROCHLORIDE
     Dosage: 25 MG/ML
  33. SOLU-MEDROL [Concomitant]
     Active Substance: METHYLPREDNISOLONE SODIUM SUCCINATE
     Dosage: 125 MG, UNK  (125 MG/2ML)
  34. COMPAZINE [Concomitant]
     Active Substance: PROCHLORPERAZINE MALEATE
     Dosage: 10 MG, UNK
  35. BENADRYL [Concomitant]
     Active Substance: DIPHENHYDRAMINE HYDROCHLORIDE
     Dosage: 25 MG, UNK
  36. EDURANT [Concomitant]
     Active Substance: RILPIVIRINE HYDROCHLORIDE
     Dosage: 25 MG, UNK
  37. DECADRON [Concomitant]
     Active Substance: DEXAMETHASONE
     Dosage: UNK

REACTIONS (4)
  - Chills [Unknown]
  - Fall [Unknown]
  - Pancytopenia [Unknown]
  - Product use issue [Unknown]
